FAERS Safety Report 12236546 (Version 2)
Quarter: 2016Q2

REPORT INFORMATION
  Report Type: Spontaneous
  Country: JP (occurrence: JP)
  Receive Date: 20160405
  Receipt Date: 20160516
  Transmission Date: 20160815
  Serious: Yes (Other)
  Sender: FDA-Public Use
  Company Number: JP-ROCHE-1736541

PATIENT
  Age: 72 Year
  Sex: Female

DRUGS (11)
  1. 5-FU [Concomitant]
     Active Substance: FLUOROURACIL
     Indication: RECTAL CANCER
     Dosage: DOSAGE IS UNCERTAIN. ?5 COURSES
     Route: 040
     Dates: start: 20150917, end: 2015
  2. CALCIUM LEVOFOLINATE [Concomitant]
     Active Substance: LEVOLEUCOVORIN CALCIUM
     Indication: RECTAL CANCER
     Dosage: DOSAGE IS UNCERTAIN. ?5 COURSES
     Route: 041
     Dates: start: 20150917, end: 2015
  3. CALCIUM LEVOFOLINATE [Concomitant]
     Active Substance: LEVOLEUCOVORIN CALCIUM
     Indication: COLON CANCER
     Dosage: DOSAGE IS UNCERTAIN.
     Route: 041
     Dates: start: 2015, end: 20160316
  4. 5-FU [Concomitant]
     Active Substance: FLUOROURACIL
     Indication: RECTAL CANCER
     Dosage: DOSAGE IS UNCERTAIN.
     Route: 040
     Dates: start: 2015, end: 20160316
  5. SEROTONE [Concomitant]
     Active Substance: AZASETRON HYDROCHLORIDE
     Indication: PROPHYLAXIS OF NAUSEA AND VOMITING
     Route: 041
     Dates: start: 20151007, end: 20160316
  6. ELPLAT [Concomitant]
     Active Substance: OXALIPLATIN
     Indication: RECTAL CANCER
     Dosage: DOSAGE IS UNCERTAIN. ?5 COURSES
     Route: 041
     Dates: start: 20150917, end: 2015
  7. 5-FU [Concomitant]
     Active Substance: FLUOROURACIL
     Indication: RECTAL CANCER
     Dosage: DOSAGE IS UNCERTAIN.
     Route: 041
     Dates: start: 2015, end: 20160316
  8. DEXART [Concomitant]
     Active Substance: DEXAMETHASONE SODIUM PHOSPHATE
     Indication: ALLERGY PROPHYLAXIS
     Route: 041
     Dates: start: 20151007, end: 20160316
  9. AVASTIN [Suspect]
     Active Substance: BEVACIZUMAB
     Indication: RECTAL CANCER
     Dosage: DOSAGE IS UNCERTAIN. RECEIVED DOSE ON 16/MAR/2016.
     Route: 041
     Dates: start: 20151202
  10. ELPLAT [Concomitant]
     Active Substance: OXALIPLATIN
     Indication: COLON CANCER
     Dosage: DOSAGE IS UNCERTAIN.
     Route: 041
     Dates: start: 2015, end: 20160316
  11. 5-FU [Concomitant]
     Active Substance: FLUOROURACIL
     Indication: RECTAL CANCER
     Dosage: DOSAGE IS UNCERTAIN. ?5 COURSES
     Route: 041
     Dates: start: 20150917, end: 2015

REACTIONS (1)
  - Interstitial lung disease [Recovering/Resolving]

NARRATIVE: CASE EVENT DATE: 20160318
